FAERS Safety Report 9959458 (Version 1)
Quarter: 2014Q1

REPORT INFORMATION
  Report Type: Spontaneous
  Country: US (occurrence: None)
  Receive Date: 20140227
  Receipt Date: 20140227
  Transmission Date: 20141002
  Serious: Yes (Other)
  Sender: FDA-Public Use
  Company Number: SYM-2014-17988

PATIENT
  Sex: Female

DRUGS (19)
  1. ELIDEL [Suspect]
     Indication: PRODUCT USED FOR UNKNOWN INDICATION
     Dosage: 1 DOSAGE FORMS, 2 IN 1 D, TOPICAL
  2. TRAMADOL HYDROCHLORIDE [Suspect]
     Indication: PAIN
     Dosage: 1 DOSAGE FORMS, AS NEEDED, 4 IN 1 D, ORAL
  3. VOLTAREN [Suspect]
     Indication: PRODUCT USED FOR UNKNOWN INDICATION
     Dosage: 1 DOSAGE FORMS, 4 IN 1 D, TOPICAL
  4. CLOBETASOL PROPIONATE [Suspect]
     Indication: PRODUCT USED FOR UNKNOWN INDICATION
     Dosage: 1 DOSAGE FORMS, 2 IN 1 D, TOPICAL
  5. RANITIDINE HYDROCHLORIDE [Suspect]
     Indication: PRODUCT USED FOR UNKNOWN INDICATION
     Dosage: 1 DOSAGE FORMS, 1 IN 1 D, ORAL
  6. MUPIROCIN [Suspect]
     Indication: PRODUCT USED FOR UNKNOWN INDICATION
     Dosage: 1 DOSAGE FORMS, 3 IN 1 D, TOPICAL
  7. PROTONIC [Suspect]
     Indication: PRODUCT USED FOR UNKNOWN INDICATION
     Dosage: ENTERIC COATED TABLET, 1 DOSAGE FORMS, 2 IN 1 D, ORAL
  8. LIORESAL [Suspect]
     Indication: PRODUCT USED FOR UNKNOWN INDICATION
     Dosage: 1600 MCG, 1 IN 1 D, INTRATHECAL
  9. TIZANIDINE [Suspect]
     Indication: PRODUCT USED FOR UNKNOWN INDICATION
     Dosage: TABLET, 2 DOSAGE FORMS, 3 IN 1 D, ORAL
  10. BACLOFEN [Suspect]
     Indication: PRODUCT USED FOR UNKNOWN INDICATION
     Dosage: TABLET, 3 DOSAGE FORMS, 3 IN 1 D, ORAL
  11. CETIRIZINE HYDROCHLORIDE [Suspect]
     Indication: PRODUCT USED FOR UNKNOWN INDICATION
     Dosage: SUSTAINED-RELEASE TABLET, 1 DOSAGE FORMS, AS NEEDED, ORAL
  12. DOCUSATE SODIUM [Suspect]
     Indication: PRODUCT USED FOR UNKNOWN INDICATION
     Dosage: CAPSULE, 2 DOSAGE FORMS, BEDTIME, ORAL
  13. CELEXA [Suspect]
     Indication: PRODUCT USED FOR UNKNOWN INDICATION
     Dosage: 1 DOSAGE FORMS, 1 IN 1 D, ORAL
  14. FLONASE [Suspect]
     Indication: PRODUCT USED FOR UNKNOWN INDICATION
     Route: 045
  15. VITAMIN D3 [Suspect]
     Indication: PRODUCT USED FOR UNKNOWN INDICATION
     Route: 048
  16. TYLENOL PM [Suspect]
     Indication: SLEEP DISORDER
     Dosage: SUSPENSION, 1 DOSAGE FORMS, AS NEEDED AT BEDTIME, ORAL
  17. SULFADIAZINE SILVER [Suspect]
     Indication: PRODUCT USED FOR UNKNOWN INDICATION
     Dosage: CREAM, 1 DOSAGE FORMS, 2 IN 1 D, TOPICAL
  18. ASTELIN [Suspect]
     Indication: PRODUCT USED FOR UNKNOWN INDICATION
     Dosage: 2 DOSAGE FORMS, 2 IN 1 D, NASAL
  19. MULTI-VIT [Suspect]
     Indication: PRODUCT USED FOR UNKNOWN INDICATION
     Dosage: TABLET, 1 DOSAGE FORMS, 1 IN 1 D, ORAL

REACTIONS (6)
  - Muscle spasticity [None]
  - Incorrect dose administered by device [None]
  - Carpal tunnel syndrome [None]
  - Osteoarthritis [None]
  - Rotator cuff syndrome [None]
  - Joint effusion [None]
